FAERS Safety Report 10896755 (Version 3)
Quarter: 2017Q2

REPORT INFORMATION
  Report Type: Spontaneous
  Country: US (occurrence: US)
  Receive Date: 20150309
  Receipt Date: 20170607
  Transmission Date: 20170829
  Serious: Yes (Other)
  Sender: FDA-Public Use
  Company Number: US-JNJFOC-20150217401

PATIENT
  Sex: Male

DRUGS (10)
  1. RISPERDAL [Suspect]
     Active Substance: RISPERIDONE
     Indication: BIPOLAR DISORDER
     Route: 048
     Dates: start: 1999, end: 2004
  2. RISPERDAL [Suspect]
     Active Substance: RISPERIDONE
     Indication: OBSESSIVE-COMPULSIVE DISORDER
     Route: 048
     Dates: start: 1999, end: 2004
  3. RISPERDAL [Suspect]
     Active Substance: RISPERIDONE
     Indication: TIC
     Route: 048
     Dates: start: 1999, end: 2004
  4. RISPERDAL [Suspect]
     Active Substance: RISPERIDONE
     Indication: ATTENTION DEFICIT/HYPERACTIVITY DISORDER
     Route: 048
     Dates: start: 1999, end: 2004
  5. RISPERDAL [Suspect]
     Active Substance: RISPERIDONE
     Indication: ATTENTION DEFICIT/HYPERACTIVITY DISORDER
     Route: 048
     Dates: start: 1999, end: 2004
  6. RISPERDAL [Suspect]
     Active Substance: RISPERIDONE
     Indication: MAJOR DEPRESSION
     Route: 048
     Dates: start: 1999, end: 2004
  7. RISPERDAL [Suspect]
     Active Substance: RISPERIDONE
     Indication: TIC
     Route: 048
     Dates: start: 1999, end: 2004
  8. RISPERDAL [Suspect]
     Active Substance: RISPERIDONE
     Indication: BIPOLAR DISORDER
     Route: 048
     Dates: start: 1999, end: 2004
  9. RISPERDAL [Suspect]
     Active Substance: RISPERIDONE
     Indication: OBSESSIVE-COMPULSIVE DISORDER
     Route: 048
     Dates: start: 1999, end: 2004
  10. RISPERDAL [Suspect]
     Active Substance: RISPERIDONE
     Indication: MAJOR DEPRESSION
     Route: 048
     Dates: start: 1999, end: 2004

REACTIONS (3)
  - Seizure [Recovered/Resolved]
  - Gynaecomastia [Unknown]
  - Loss of consciousness [Unknown]
